FAERS Safety Report 12429144 (Version 2)
Quarter: 2016Q3

REPORT INFORMATION
  Report Type: Spontaneous
  Country: FR (occurrence: FR)
  Receive Date: 20160602
  Receipt Date: 20160716
  Transmission Date: 20161109
  Serious: Yes (Hospitalization)
  Sender: FDA-Public Use
  Company Number: FR-ASTRAZENECA-2016SE58572

PATIENT
  Age: 80 Year
  Sex: Male

DRUGS (7)
  1. CRESTOR [Concomitant]
     Active Substance: ROSUVASTATIN CALCIUM
  2. LASILIX [Concomitant]
     Active Substance: FUROSEMIDE
     Dosage: UNKNOWN
  3. DETENSIEL [Concomitant]
     Active Substance: BISOPROLOL FUMARATE
  4. INIPOMP [Concomitant]
     Active Substance: PANTOPRAZOLE SODIUM
  5. GENTALLINE [Suspect]
     Active Substance: GENTAMICIN SULFATE
     Indication: ENDOCARDITIS STAPHYLOCOCCAL
     Route: 042
     Dates: start: 20120725, end: 20120731
  6. CUBICIN [Suspect]
     Active Substance: DAPTOMYCIN
     Indication: ENDOCARDITIS STAPHYLOCOCCAL
     Route: 042
     Dates: start: 20120725, end: 20120731
  7. RIFADIN [Concomitant]
     Active Substance: RIFAMPIN

REACTIONS (1)
  - Acute generalised exanthematous pustulosis [Not Recovered/Not Resolved]

NARRATIVE: CASE EVENT DATE: 20120727
